FAERS Safety Report 23553674 (Version 1)
Quarter: 2024Q1

REPORT INFORMATION
  Report Type: Spontaneous
  Country: US (occurrence: US)
  Receive Date: 20240222
  Receipt Date: 20240222
  Transmission Date: 20240409
  Serious: Yes (Other)
  Sender: FDA-Public Use
  Company Number: US-002147023-NVSC2024US034238

PATIENT

DRUGS (4)
  1. RIBOCICLIB [Suspect]
     Active Substance: RIBOCICLIB
     Indication: Product used for unknown indication
     Dosage: UNK
     Route: 065
  2. LETROZOLE [Suspect]
     Active Substance: LETROZOLE
     Indication: Product used for unknown indication
     Dosage: 2.5 MG, QD
     Route: 065
     Dates: start: 20221110
  3. IBRANCE [Suspect]
     Active Substance: PALBOCICLIB
     Indication: Metastases to breast
     Dosage: 75 MG, QD (28 DAY SUPPLY, DAYS 1-21, G 7 DAYS OFF PER SCHEDULE)
     Route: 048
     Dates: start: 20201110
  4. IBRANCE [Suspect]
     Active Substance: PALBOCICLIB
     Dosage: 75 MG, QD (28 DAY SUPPLY, DAYS 1-21, G 7 DAYS OFF PER SCHEDULE)
     Route: 048
     Dates: start: 20221110

REACTIONS (5)
  - Breast cancer recurrent [Unknown]
  - Cytopenia [Unknown]
  - Nasal congestion [Recovered/Resolved]
  - Hypertransaminasaemia [Unknown]
  - Cough [Recovered/Resolved]
